FAERS Safety Report 20364224 (Version 1)
Quarter: 2022Q1

REPORT INFORMATION
  Report Type: Spontaneous
  Country: US (occurrence: None)
  Receive Date: 20220121
  Receipt Date: 20220121
  Transmission Date: 20220423
  Serious: Yes (Hospitalization)
  Sender: FDA-Public Use
  Company Number: None

PATIENT
  Age: 60 Year
  Sex: Female
  Weight: 56.4 kg

DRUGS (1)
  1. FEMARA [Suspect]
     Active Substance: LETROZOLE
     Dates: end: 20210528

REACTIONS (6)
  - Abdominal pain lower [None]
  - Abdominal distension [None]
  - Abdominal adhesions [None]
  - Pyrexia [None]
  - Sepsis [None]
  - Procedural complication [None]

NARRATIVE: CASE EVENT DATE: 20210528
